FAERS Safety Report 12245447 (Version 1)
Quarter: 2016Q2

REPORT INFORMATION
  Report Type: Spontaneous
  Country: FR (occurrence: FR)
  Receive Date: 20160407
  Receipt Date: 20160407
  Transmission Date: 20160815
  Serious: Yes (Hospitalization)
  Sender: FDA-Public Use
  Company Number: FR-PFIZER INC-2016187706

PATIENT
  Age: 48 Year
  Sex: Male

DRUGS (4)
  1. LYRICA [Suspect]
     Active Substance: PREGABALIN
     Dosage: 600 MG, SINGLE
     Route: 048
     Dates: start: 20160313, end: 20160313
  2. LEXOMIL [Suspect]
     Active Substance: BROMAZEPAM
     Dosage: 30 DF, SINGLE
     Route: 048
     Dates: start: 20160313, end: 20160313
  3. RIVOTRIL [Suspect]
     Active Substance: CLONAZEPAM
     Dosage: 50 ML, SINGLE
     Route: 048
     Dates: start: 20160313, end: 20160313
  4. MODOPAR [Suspect]
     Active Substance: BENSERAZIDE HYDROCHLORIDE\LEVODOPA
     Dosage: 60 DF, SINGLE
     Route: 048
     Dates: start: 20160313, end: 20160313

REACTIONS (4)
  - Somnolence [Recovered/Resolved]
  - Intentional overdose [Recovered/Resolved]
  - Toxicity to various agents [Recovered/Resolved]
  - Depressed level of consciousness [Recovered/Resolved]

NARRATIVE: CASE EVENT DATE: 20160313
